FAERS Safety Report 20583978 (Version 1)
Quarter: 2022Q1

REPORT INFORMATION
  Report Type: Spontaneous
  Country: GB (occurrence: GB)
  Receive Date: 20220311
  Receipt Date: 20220311
  Transmission Date: 20220424
  Serious: Yes (Hospitalization, Other)
  Sender: FDA-Public Use
  Company Number: GB-SA-2022SA070352

PATIENT
  Age: 25 Year
  Sex: Female

DRUGS (6)
  1. CAMPATH [Suspect]
     Active Substance: ALEMTUZUMAB
     Indication: Solid organ transplant
     Dosage: 30 MG INTRAOPERATIVELY
     Route: 058
  2. MYCOPHENOLATE MOFETIL [Concomitant]
     Active Substance: MYCOPHENOLATE MOFETIL
     Indication: Susac^s syndrome
     Dosage: 500 MG, BID
  3. MYCOPHENOLATE MOFETIL [Concomitant]
     Active Substance: MYCOPHENOLATE MOFETIL
     Dosage: 250 MG, BID
  4. MYCOPHENOLATE MOFETIL [Concomitant]
     Active Substance: MYCOPHENOLATE MOFETIL
     Dosage: 500 MG, BID
  5. MYCOPHENOLATE MOFETIL [Concomitant]
     Active Substance: MYCOPHENOLATE MOFETIL
     Dosage: 1 G, BID
  6. TACROLIMUS [Concomitant]
     Active Substance: TACROLIMUS

REACTIONS (12)
  - Susac^s syndrome [Recovered/Resolved]
  - Sensory disturbance [Recovered/Resolved]
  - Tinnitus [Recovered/Resolved]
  - Vertigo positional [Recovered/Resolved]
  - Hypoaesthesia [Recovered/Resolved]
  - Aphasia [Recovered/Resolved]
  - Sensory processing disorder [Recovered/Resolved]
  - Confusional state [Recovered/Resolved]
  - Immune reconstitution inflammatory syndrome [Recovered/Resolved]
  - Fine motor skill dysfunction [Recovered/Resolved]
  - Encephalopathy [Recovered/Resolved]
  - Off label use [Recovered/Resolved]
